FAERS Safety Report 8690832 (Version 6)
Quarter: 2013Q1

REPORT INFORMATION
  Report Type: Spontaneous
  Country: US (occurrence: US)
  Receive Date: 20120729
  Receipt Date: 20130306
  Transmission Date: 20140127
  Serious: Yes (Hospitalization, Disabling, Other)
  Sender: FDA-Public Use
  Company Number: US-009507513-1207USA005749

PATIENT
  Sex: Female
  Weight: 78.91 kg

DRUGS (17)
  1. FOSAMAX [Suspect]
     Indication: OSTEOPENIA
     Dosage: 10 MG, UNK
     Route: 048
     Dates: start: 20000124, end: 20010331
  2. FOSAMAX [Suspect]
     Indication: OSTEOPOROSIS PROPHYLAXIS
     Dosage: 70 MG, UNK
     Route: 048
     Dates: start: 20010322, end: 201101
  3. FOSAMAX [Suspect]
     Indication: OSTEOPENIA
     Dosage: 70 MG, QW
     Route: 048
     Dates: start: 20080425, end: 20110425
  4. ALENDRONATE SODIUM [Suspect]
     Indication: OSTEOPENIA
     Dosage: 70 MG, QW
     Route: 048
     Dates: start: 20080425, end: 20110425
  5. VITAMINS (UNSPECIFIED) [Concomitant]
     Dosage: 1 DF, QD
     Dates: start: 2002
  6. OMEGA-3 MARINE TRIGLYCERIDES [Concomitant]
     Dosage: 2000 MG, UNK
  7. LISINOPRIL [Concomitant]
     Indication: HYPERTENSION
     Dosage: 20-60 MG QD
     Dates: start: 2003
  8. PREMARIN [Concomitant]
     Indication: HORMONE REPLACEMENT THERAPY
     Dosage: 625 MG, UNK
     Dates: start: 1988, end: 200301
  9. PROVERA [Concomitant]
     Indication: HORMONE REPLACEMENT THERAPY
     Dosage: 5 MG, QD
     Dates: start: 1988, end: 200301
  10. ECOTRIN [Concomitant]
     Dosage: 325 MG, QD
  11. CALCIUM (UNSPECIFIED) [Concomitant]
  12. ZOCOR [Concomitant]
     Indication: HYPERLIPIDAEMIA
     Dosage: 80 MG, UNK
     Route: 048
  13. CETAPHIL ANTIBACTERIAL GENTLE CLEANSING BAR [Concomitant]
     Indication: ECZEMA NUMMULAR
     Dosage: UNK
  14. CETAPHIL MOISTURIZING CREAM [Concomitant]
     Indication: ECZEMA NUMMULAR
  15. ARISTOCORT A [Concomitant]
     Indication: ECZEMA NUMMULAR
     Dosage: 0.1%
  16. CORTICOSTEROIDS (UNSPECIFIED) [Concomitant]
     Indication: ECZEMA NUMMULAR
  17. CHERATUSSIN AC [Concomitant]

REACTIONS (29)
  - Intramedullary rod insertion [Not Recovered/Not Resolved]
  - Low turnover osteopathy [Not Recovered/Not Resolved]
  - Femur fracture [Unknown]
  - Blepharoplasty [Unknown]
  - Arthroscopy [Unknown]
  - Femur fracture [Not Recovered/Not Resolved]
  - Tooth extraction [Unknown]
  - Clavicle fracture [Unknown]
  - Skin irritation [Unknown]
  - Menopausal symptoms [Unknown]
  - Meniscus injury [Unknown]
  - Patellofemoral pain syndrome [Unknown]
  - Joint effusion [Unknown]
  - Carpal tunnel syndrome [Unknown]
  - Electrocardiogram ST-T segment abnormal [Unknown]
  - Bundle branch block [Unknown]
  - Angina pectoris [Unknown]
  - Bursitis [Unknown]
  - Atrial fibrillation [Not Recovered/Not Resolved]
  - Blood triglycerides increased [Unknown]
  - Sleep apnoea syndrome [Unknown]
  - Cough [Unknown]
  - Bone lesion [Unknown]
  - Groin pain [Unknown]
  - Arthritis [Unknown]
  - Bone pain [Recovering/Resolving]
  - Pruritus [Unknown]
  - Oedema peripheral [Unknown]
  - Cholelithiasis [Unknown]
